FAERS Safety Report 15288755 (Version 1)
Quarter: 2018Q3

REPORT INFORMATION
  Report Type: Spontaneous
  Country: US (occurrence: US)
  Receive Date: 20180817
  Receipt Date: 20180817
  Transmission Date: 20181010
  Serious: No
  Sender: FDA-Public Use
  Company Number: US-ASTRAZENECA-2018SF04332

PATIENT
  Age: 487 Month
  Sex: Male
  Weight: 81.2 kg

DRUGS (3)
  1. QUETIAPINE. [Suspect]
     Active Substance: QUETIAPINE
     Indication: ADVERSE DRUG REACTION
     Dosage: ONE TAB AT NIGHT FOR ONE WEEK, THEN TWO TABS AT NIGHT (MANUFACTURED BY ACCORD) FIRST BOTTLE
     Route: 048
  2. QUETIAPINE. [Suspect]
     Active Substance: QUETIAPINE
     Indication: ADVERSE DRUG REACTION
     Dosage: 150 MG AT NIGHT
     Route: 048
     Dates: start: 20180405, end: 20180709
  3. QUETIAPINE. [Suspect]
     Active Substance: QUETIAPINE
     Indication: ADVERSE DRUG REACTION
     Dosage: 150MG HALF TABS AT BEDTIME FOR ONE WEEK, AND TOOK 6?8 PILLS (MANUFACTURED BY LUPIN) SECOND BOTTLE
     Route: 048

REACTIONS (15)
  - Panic attack [Not Recovered/Not Resolved]
  - Increased appetite [Unknown]
  - Weight increased [Recovering/Resolving]
  - Drug dose omission [Unknown]
  - Weight decreased [Unknown]
  - Crying [Unknown]
  - Muscle twitching [Recovered/Resolved]
  - Depression [Not Recovered/Not Resolved]
  - Tremor [Unknown]
  - Dizziness [Unknown]
  - Off label use [Unknown]
  - Confusional state [Unknown]
  - Screaming [Unknown]
  - Pruritus [Recovered/Resolved]
  - Dry mouth [Unknown]

NARRATIVE: CASE EVENT DATE: 201804
